FAERS Safety Report 14368342 (Version 1)
Quarter: 2018Q1

REPORT INFORMATION
  Report Type: Spontaneous
  Country: IT (occurrence: IT)
  Receive Date: 20180109
  Receipt Date: 20180109
  Transmission Date: 20180509
  Serious: Yes (Other)
  Sender: FDA-Public Use
  Company Number: IT-PFIZER INC-2018008521

PATIENT
  Age: 61 Year
  Sex: Male

DRUGS (2)
  1. XANAX [Suspect]
     Active Substance: ALPRAZOLAM
     Dosage: UNK
     Route: 048
  2. VALIUM [Suspect]
     Active Substance: DIAZEPAM
     Dosage: UNK
     Route: 048

REACTIONS (3)
  - Intentional product misuse [Unknown]
  - Suicide attempt [Unknown]
  - Overdose [Unknown]
